FAERS Safety Report 7305510-5 (Version None)
Quarter: 2011Q1

REPORT INFORMATION
  Report Type: 
  Country: None (occurrence: None)
  Receive Date: 20110222
  Receipt Date: 20110208
  Transmission Date: 20110831
  Serious: Yes (Hospitalization)
  Sender: FDA-Public Use
  Company Number: US-SANOFI-AVENTIS-2011SA009271

PATIENT
  Age: 71 Year
  Sex: Male
  Weight: 145.9 kg

DRUGS (10)
  1. PRILOSEC [Concomitant]
     Route: 048
  2. WARFARIN [Concomitant]
  3. DIGOXIN [Concomitant]
     Dosage: TWO TABLETS DAILY FOR THREE DAYS THEN ONE TABLET DAILY
  4. LOPRESSOR [Concomitant]
     Route: 048
  5. KAOCHLOR-EFF [Concomitant]
     Route: 048
  6. MULTAQ [Suspect]
     Indication: ATRIAL FIBRILLATION
     Route: 048
     Dates: start: 20110113, end: 20110125
  7. ADVAIR DISKUS 100/50 [Concomitant]
     Dosage: DOSE:1 PUFF(S)
     Route: 055
  8. FUROSEMIDE [Concomitant]
     Dosage: TWO TABLETS IN AM AND ONE TABLET IN PM
  9. LIPITOR [Concomitant]
     Route: 048
  10. SPIRONOLACTONE [Concomitant]
     Route: 048

REACTIONS (4)
  - ATRIAL FIBRILLATION [None]
  - INTERNATIONAL NORMALISED RATIO INCREASED [None]
  - LEUKOCYTOCLASTIC VASCULITIS [None]
  - CARDIAC FAILURE [None]
